FAERS Safety Report 12858340 (Version 1)
Quarter: 2016Q4

REPORT INFORMATION
  Report Type: Spontaneous
  Country: US (occurrence: US)
  Receive Date: 20161018
  Receipt Date: 20161018
  Transmission Date: 20170207
  Serious: No
  Sender: FDA-Public Use
  Company Number: US-PFIZER INC-2016484968

PATIENT
  Sex: Male

DRUGS (3)
  1. LYRICA [Suspect]
     Active Substance: PREGABALIN
     Dosage: 50 MG, 3X/DAY
  2. LYRICA [Suspect]
     Active Substance: PREGABALIN
     Dosage: TWO CAPSULES FOR THREE DAYS
  3. LYRICA [Suspect]
     Active Substance: PREGABALIN
     Dosage: ONE CAPSULE FOR TWO DAYS

REACTIONS (2)
  - Intentional product use issue [Unknown]
  - Insomnia [Unknown]
